FAERS Safety Report 8386108-7 (Version None)
Quarter: 2012Q2

REPORT INFORMATION
  Report Type: 
  Country: None (occurrence: None)
  Receive Date: 20120525
  Receipt Date: 20120518
  Transmission Date: 20120825
  Serious: Yes (Other)
  Sender: FDA-Public Use
  Company Number: US-BAYER-2012-026521

PATIENT
  Age: 34 Year
  Sex: Female

DRUGS (6)
  1. YASMIN [Suspect]
     Indication: MENSTRUAL CYCLE MANAGEMENT
     Dosage: UNK
     Route: 048
     Dates: start: 20031031, end: 20100325
  2. AVANDIA [Concomitant]
     Dosage: 4 MG, UNK
  3. DROSPIRENONE AND ETHINYL ESTRADIOL [Suspect]
     Dosage: UNK
     Route: 048
     Dates: start: 20031031, end: 20100325
  4. COROMEGA [Concomitant]
     Dosage: 2000-3/2.5
  5. ADVIL [Concomitant]
     Dosage: UNK UNK, PRN
  6. RIOMET [Concomitant]
     Dosage: 500MG/ 5ML

REACTIONS (4)
  - PAIN IN EXTREMITY [None]
  - DYSPNOEA [None]
  - DEEP VEIN THROMBOSIS [None]
  - INJURY [None]
